FAERS Safety Report 4862308-5 (Version None)
Quarter: 2005Q4

REPORT INFORMATION
  Report Type: 
  Country: None (occurrence: None)
  Receive Date: 20051129
  Receipt Date: 20050815
  Transmission Date: 20060501
  Serious: No
  Sender: FDA-Public Use
  Company Number: WAES 0508USA02586

PATIENT
  Age: 67 Year
  Sex: Male

DRUGS (3)
  1. ZETIA [Suspect]
     Indication: BLOOD CHOLESTEROL INCREASED
     Dosage: 10 MG DAILY PO
     Route: 048
     Dates: start: 20050812
  2. VASOTEC [Concomitant]
  3. ATENOLOL [Concomitant]

REACTIONS (2)
  - DYSPNOEA [None]
  - FEELING ABNORMAL [None]
